FAERS Safety Report 13252158 (Version 3)
Quarter: 2017Q2

REPORT INFORMATION
  Report Type: Spontaneous
  Country: CN (occurrence: CN)
  Receive Date: 20170220
  Receipt Date: 20170411
  Transmission Date: 20170830
  Serious: Yes (Death, Other)
  Sender: FDA-Public Use
  Company Number: CN-GLAXOSMITHKLINE-CN2017GSK021635

PATIENT
  Age: 29 Year
  Sex: Male

DRUGS (2)
  1. TERBUTALINE [Suspect]
     Active Substance: TERBUTALINE
     Indication: PRODUCT USED FOR UNKNOWN INDICATION
     Route: 055
  2. VENTOLIN HFA [Suspect]
     Active Substance: ALBUTEROL SULFATE
     Indication: ASTHMA
     Dosage: UNK
     Route: 055
     Dates: start: 2005

REACTIONS (9)
  - Dyspnoea [Fatal]
  - Status asthmaticus [Fatal]
  - Immune system disorder [Unknown]
  - Mental disorder [Unknown]
  - Stress [Unknown]
  - Localised infection [Unknown]
  - Sinus disorder [Unknown]
  - Asthma [Fatal]
  - Cushing^s syndrome [Unknown]

NARRATIVE: CASE EVENT DATE: 20151108
